FAERS Safety Report 9230173 (Version 2)
Quarter: 2013Q3

REPORT INFORMATION
  Report Type: Spontaneous
  Country: FR (occurrence: FR)
  Receive Date: 20130415
  Receipt Date: 20130710
  Transmission Date: 20140515
  Serious: Yes (Hospitalization)
  Sender: FDA-Public Use
  Company Number: FR-009507513-1304FRA001306

PATIENT
  Age: 29 Year
  Sex: Female

DRUGS (3)
  1. ORGALUTRAN [Suspect]
     Indication: ASSISTED FERTILISATION
     Dosage: 0.25 MG, QD
     Route: 058
     Dates: start: 20120516, end: 20120520
  2. GONADOTROPHINE CHORIONIQUE ENDO 5000 UI/1ML [Suspect]
     Indication: ASSISTED FERTILISATION
     Dosage: 5000 IU, ONCE
     Route: 030
     Dates: start: 20120521, end: 20120521
  3. GONAL-F [Suspect]
     Indication: ASSISTED FERTILISATION
     Dosage: 900 IU, QD
     Route: 058
     Dates: start: 20120511, end: 20120518

REACTIONS (3)
  - Haematocrit increased [Recovered/Resolved]
  - Ascites [Recovered/Resolved]
  - Ovarian hyperstimulation syndrome [Recovered/Resolved]
